FAERS Safety Report 17360070 (Version 1)
Quarter: 2020Q1

REPORT INFORMATION
  Report Type: Spontaneous
  Country: NL (occurrence: NL)
  Receive Date: 20200203
  Receipt Date: 20200203
  Transmission Date: 20200409
  Serious: Yes (Hospitalization)
  Sender: FDA-Public Use
  Company Number: NL-TEVA-2020-NL-1178055

PATIENT
  Age: 42 Year
  Sex: Female
  Weight: 61 kg

DRUGS (6)
  1. CAPECITABINE. [Suspect]
     Active Substance: CAPECITABINE
     Indication: BREAST CANCER
     Dosage: FILM-COATED TABLET, 500 MG (MILLIGRAM), 2 TIMES A DAY, 4, 2000 MG PER 12 HRS
     Route: 065
     Dates: start: 20191220, end: 20200110
  2. TRASTUZUMAB. [Concomitant]
     Active Substance: TRASTUZUMAB
  3. CETOMACROGOL CREME [Concomitant]
  4. PARACETAMOL [Concomitant]
     Active Substance: ACETAMINOPHEN
  5. LOPERAMIDE [Concomitant]
     Active Substance: LOPERAMIDE
  6. METOCLOPRAMIDE. [Concomitant]
     Active Substance: METOCLOPRAMIDE

REACTIONS (1)
  - Enterocolitis [Recovering/Resolving]

NARRATIVE: CASE EVENT DATE: 20200105
